FAERS Safety Report 7184401-7 (Version None)
Quarter: 2010Q4

REPORT INFORMATION
  Report Type: 
  Country: None (occurrence: None)
  Receive Date: 20101123
  Receipt Date: 20100819
  Transmission Date: 20110411
  Serious: No
  Sender: FDA-Public Use
  Company Number: 017552

PATIENT
  Sex: Female
  Weight: 92.5 kg

DRUGS (6)
  1. CIMZIA [Suspect]
     Indication: CROHN'S DISEASE
     Dosage: (400 MG 1X/28 DAYS SUBCUTANEOUS)
     Route: 058
     Dates: start: 20100301
  2. ESTRADIOL [Concomitant]
  3. PAXIL [Concomitant]
  4. PRILOSEC [Concomitant]
  5. AMBIEN [Concomitant]
  6. LORAZEPAM [Concomitant]

REACTIONS (4)
  - COUGH [None]
  - FATIGUE [None]
  - MUSCULOSKELETAL PAIN [None]
  - WHEEZING [None]
